FAERS Safety Report 7576570-1 (Version None)
Quarter: 2011Q2

REPORT INFORMATION
  Report Type: 
  Country: None (occurrence: None)
  Receive Date: 20110628
  Receipt Date: 20110617
  Transmission Date: 20111010
  Serious: Yes (Other)
  Sender: FDA-Public Use
  Company Number: US-TYCO HEALTHCARE/MALLINCKRODT-T201101114

PATIENT
  Sex: Female

DRUGS (5)
  1. EXALGO [Suspect]
     Indication: ARTHRALGIA
     Dosage: 16 MG, QD
     Route: 048
     Dates: start: 20110301
  2. EXALGO [Suspect]
     Dosage: 8 MG, QD
     Route: 048
     Dates: start: 20110401, end: 20110415
  3. FENTANYL [Concomitant]
     Indication: ARTHRALGIA
     Dosage: 75 UG/HR, UNK
     Route: 062
     Dates: end: 20110301
  4. EXALGO [Suspect]
     Dosage: 8 MG QD
     Route: 048
     Dates: start: 20110507
  5. DILAUDID [Suspect]
     Dosage: 8 MG, PRN
     Route: 048
     Dates: start: 20110301, end: 20110415

REACTIONS (11)
  - DRUG INEFFECTIVE [None]
  - GAIT DISTURBANCE [None]
  - DIZZINESS [None]
  - FEELING HOT [None]
  - FEELING ABNORMAL [None]
  - PRESYNCOPE [None]
  - ACCIDENTAL OVERDOSE [None]
  - APHASIA [None]
  - DYSPNOEA [None]
  - NAUSEA [None]
  - HEART RATE INCREASED [None]
